FAERS Safety Report 9422178 (Version 1)
Quarter: 2013Q3

REPORT INFORMATION
  Report Type: Spontaneous
  Country: CA (occurrence: CA)
  Receive Date: 20130726
  Receipt Date: 20130726
  Transmission Date: 20140515
  Serious: Yes (Hospitalization, Disabling, Other)
  Sender: FDA-Public Use
  Company Number: PHHY2012CA012227

PATIENT
  Age: 62 Year
  Sex: Male

DRUGS (14)
  1. TASIGNA [Suspect]
     Indication: CHRONIC MYELOID LEUKAEMIA
     Dosage: 400 MG, BID
     Route: 048
     Dates: start: 20070514
  2. TASIGNA [Suspect]
     Dosage: 200 MG, BID
     Route: 048
  3. TASIGNA [Suspect]
     Dosage: 300 MG, BID
     Route: 048
  4. LIPITOR [Concomitant]
     Dosage: 40 MG, DIE
  5. ENTROPHEN [Concomitant]
     Dosage: 80 MG, DIE
  6. EMPRACET [Concomitant]
  7. DURAGESIC [Concomitant]
     Dosage: 50 UG/HR, Q3H
  8. ATIVAN [Concomitant]
     Dosage: 1 MG, DIE
  9. LASIX [Concomitant]
     Dosage: 20 MG, DIE
  10. PREDNISONE [Concomitant]
     Dosage: 50 MG, DIE
  11. GLUCOPHAGE [Concomitant]
     Dosage: 2000 MG, DIE
  12. JANUVIA [Concomitant]
     Dosage: 100 MG, DIE
  13. INSULIN [Concomitant]
     Route: 058
  14. DIAMICRON [Concomitant]
     Dosage: 120 MG, DIE

REACTIONS (4)
  - Peripheral arterial occlusive disease [Not Recovered/Not Resolved]
  - Necrosis [Not Recovered/Not Resolved]
  - Peripheral ischaemia [Not Recovered/Not Resolved]
  - Skin ulcer [Unknown]
